FAERS Safety Report 11221452 (Version 1)
Quarter: 2015Q2

REPORT INFORMATION
  Report Type: Spontaneous
  Country: US (occurrence: US)
  Receive Date: 20150626
  Receipt Date: 20150626
  Transmission Date: 20150821
  Serious: No
  Sender: FDA-Public Use
  Company Number: US-PFIZER INC-2015210262

PATIENT
  Sex: Female

DRUGS (3)
  1. DUAVEE [Suspect]
     Active Substance: BAZEDOXIFENE ACETATE\ESTROGENS, CONJUGATED
  2. ESTRADIOL. [Suspect]
     Active Substance: ESTRADIOL
  3. PROGESTIN [Suspect]
     Active Substance: PROGESTERONE

REACTIONS (3)
  - Mood altered [Unknown]
  - Weight increased [Unknown]
  - Contraindicated drug administered [Unknown]
